FAERS Safety Report 9695195 (Version 1)
Quarter: 2013Q4

REPORT INFORMATION
  Report Type: Spontaneous
  Country: FR (occurrence: FR)
  Receive Date: 20131119
  Receipt Date: 20131119
  Transmission Date: 20140711
  Serious: Yes (Hospitalization)
  Sender: FDA-Public Use
  Company Number: FR-NOVOPROD-392640

PATIENT
  Age: 86 Year
  Sex: Male
  Weight: 123 kg

DRUGS (14)
  1. NOVONORM [Suspect]
     Indication: TYPE 2 DIABETES MELLITUS
     Dosage: 2 MG, BID
     Route: 048
     Dates: end: 20130909
  2. GLIMEPIRIDE [Suspect]
     Indication: TYPE 2 DIABETES MELLITUS
     Dosage: 4 MG, QD
     Route: 048
     Dates: end: 20130909
  3. ONGLYZA [Suspect]
     Indication: TYPE 2 DIABETES MELLITUS
     Dosage: 4 MG, QD
     Route: 048
     Dates: end: 20130909
  4. LANTUS [Suspect]
     Indication: TYPE 2 DIABETES MELLITUS
     Dosage: 26 IU, QD
     Route: 058
     Dates: end: 20130909
  5. LANTUS [Suspect]
     Dosage: 6 IU, QD
     Route: 058
     Dates: start: 20130910
  6. IMOVANE [Concomitant]
     Dosage: 7.5 MG, QD
     Route: 048
  7. EXELON                             /01383201/ [Concomitant]
     Dosage: ONE PHARMACEUTICAL DOSE
     Route: 062
  8. KARDEGIC [Concomitant]
     Dosage: 160 MG, QD
     Route: 048
  9. CRESTOR [Concomitant]
     Dosage: 10 MG, QD
     Route: 048
  10. TEMERIT [Concomitant]
     Dosage: 5 MG, QD
     Route: 048
  11. LASILIX SPECIAL                    /00032601/ [Concomitant]
     Dosage: 250 MG, QD
     Route: 048
  12. LASILIX                            /00032601/ [Concomitant]
     Dosage: 40 MG, QD
     Route: 048
  13. ATACAND [Concomitant]
     Dosage: 16 MG, QD
     Route: 048
  14. CHIBROPROSCAR [Concomitant]
     Dosage: 5 MG, QD
     Route: 048

REACTIONS (5)
  - Renal failure [Not Recovered/Not Resolved]
  - Hypothermia [Recovered/Resolved]
  - Confusional state [Recovered/Resolved]
  - Hypoglycaemia [Recovered/Resolved]
  - Hypoglycaemic coma [Recovered/Resolved]
